FAERS Safety Report 8428121-7 (Version None)
Quarter: 2012Q2

REPORT INFORMATION
  Report Type: 
  Country: None (occurrence: None)
  Receive Date: 20120611
  Receipt Date: 20120607
  Transmission Date: 20120825
  Serious: Yes (Death)
  Sender: FDA-Public Use
  Company Number: US-ASTRAZENECA-2012MN29381

PATIENT
  Age: 266 Day
  Sex: Female

DRUGS (10)
  1. CITRIC ACID [Concomitant]
  2. FUROSEMIDE [Concomitant]
  3. ESOMEPRAZOLE [Concomitant]
  4. BUDESONIDE [Concomitant]
  5. CHLOROTHIAZIDE [Concomitant]
  6. SYNAGIS [Suspect]
     Route: 030
     Dates: start: 20120320, end: 20120320
  7. CARVEDILOL [Concomitant]
  8. CAPTOPRIL [Concomitant]
  9. SODIUM CHLORIDE [Concomitant]
  10. ALBUTEROL [Concomitant]

REACTIONS (1)
  - CARDIAC FAILURE [None]
